FAERS Safety Report 22197938 (Version 1)
Quarter: 2023Q2

REPORT INFORMATION
  Report Type: Spontaneous
  Country: CN (occurrence: CN)
  Receive Date: 20230411
  Receipt Date: 20230411
  Transmission Date: 20230721
  Serious: Yes (Other)
  Sender: FDA-Public Use
  Company Number: CN-PFIZER INC-PV202300065805

PATIENT
  Age: 18 Month
  Sex: Female
  Weight: 11.6 kg

DRUGS (3)
  1. AZITHROMYCIN [Suspect]
     Active Substance: AZITHROMYCIN
     Dosage: UNK
  2. ANDROGRAPHOLIDE [Suspect]
     Active Substance: ANDROGRAPHOLIDE
     Indication: Detoxification
     Dosage: 100 MG, 1X/DAY
     Route: 041
     Dates: start: 20230404, end: 20230404
  3. DEXTROSE [Concomitant]
     Active Substance: DEXTROSE\DEXTROSE MONOHYDRATE
     Indication: Vehicle solution use
     Dosage: 100 ML, 1X/DAY
     Route: 041
     Dates: start: 20230404, end: 20230404

REACTIONS (6)
  - Rash maculo-papular [Recovering/Resolving]
  - Pruritus [Recovering/Resolving]
  - Agitation [Unknown]
  - Crying [Unknown]
  - Erythema [Unknown]
  - Skin swelling [Unknown]

NARRATIVE: CASE EVENT DATE: 20230404
